FAERS Safety Report 5153987-6 (Version None)
Quarter: 2006Q4

REPORT INFORMATION
  Report Type: 
  Country: None (occurrence: None)
  Receive Date: 20061120
  Receipt Date: 20061116
  Transmission Date: 20070319
  Serious: Yes (Other)
  Sender: FDA-Public Use
  Company Number: US-GLAXOSMITHKLINE-A0627833A

PATIENT
  Age: 72 Year
  Sex: Male

DRUGS (5)
  1. PAXIL CR [Suspect]
     Indication: DEPRESSION
     Dosage: 37.5MG PER DAY
     Route: 048
     Dates: end: 20061101
  2. BUSPAR [Concomitant]
  3. VYTORIN [Concomitant]
  4. SONATA [Concomitant]
  5. VITAMINS [Concomitant]

REACTIONS (7)
  - ANXIETY [None]
  - DRY MOUTH [None]
  - HEADACHE [None]
  - MENTAL IMPAIRMENT [None]
  - SOCIAL AVOIDANT BEHAVIOUR [None]
  - SOMNOLENCE [None]
  - SUICIDAL IDEATION [None]
